FAERS Safety Report 6499187-9 (Version None)
Quarter: 2009Q4

REPORT INFORMATION
  Report Type: 
  Country: None (occurrence: None)
  Receive Date: 20091215
  Receipt Date: 20091208
  Transmission Date: 20100525
  Serious: Yes (Other)
  Sender: FDA-Public Use
  Company Number: JP-JNJCH-2009032121

PATIENT
  Sex: Male

DRUGS (2)
  1. CETIRIZINE HYDROCHLORIDE [Suspect]
     Indication: PRURITUS
     Dosage: TEXT:10 MG, 5 MG
     Route: 048
  2. CETIRIZINE HYDROCHLORIDE [Suspect]
     Dosage: TEXT:5 MG
     Route: 048

REACTIONS (2)
  - ILEUS [None]
  - SOMNOLENCE [None]
